FAERS Safety Report 9286485 (Version 3)
Quarter: 2013Q2

REPORT INFORMATION
  Report Type: Spontaneous
  Country: CO (occurrence: CO)
  Receive Date: 20130513
  Receipt Date: 20130624
  Transmission Date: 20140414
  Serious: Yes (Other)
  Sender: FDA-Public Use
  Company Number: CO-BAXTER-2013BAX014835

PATIENT
  Age: 16 Year
  Sex: Male
  Weight: 53 kg

DRUGS (1)
  1. FEIBA 500 U. [Suspect]
     Indication: HAEMOPHILIA
     Route: 042
     Dates: start: 20130413, end: 20130414

REACTIONS (6)
  - Venous thrombosis limb [Unknown]
  - Oedema [Unknown]
  - Blister [Unknown]
  - Erythema [Unknown]
  - Laceration [Unknown]
  - Contusion [Unknown]
